FAERS Safety Report 24060905 (Version 1)
Quarter: 2024Q3

REPORT INFORMATION
  Report Type: Spontaneous
  Country: US (occurrence: None)
  Receive Date: 20240705
  Receipt Date: 20240705
  Transmission Date: 20241016
  Serious: Yes (Hospitalization)
  Sender: Public
  Company Number: None

PATIENT
  Age: 61 Year
  Sex: Male
  Weight: 114.3 kg

DRUGS (25)
  1. TACROLIMUS [Suspect]
     Active Substance: TACROLIMUS
     Indication: Transplant rejection
     Dosage: FREQUENCY : TWICE A DAY;?
     Route: 048
     Dates: start: 20240604
  2. TACROLIMUS [Suspect]
     Active Substance: TACROLIMUS
     Indication: Prophylaxis
  3. MYCOPHENOLATE MOFETIL [Suspect]
     Active Substance: MYCOPHENOLATE MOFETIL
     Indication: Transplant rejection
     Dosage: FREQUENCY : TWICE A DAY;?
     Route: 048
     Dates: start: 20240604
  4. MYCOPHENOLATE MOFETIL [Suspect]
     Active Substance: MYCOPHENOLATE MOFETIL
     Indication: Prophylaxis
  5. ACETAMINOPHEN [Concomitant]
     Active Substance: ACETAMINOPHEN
     Dates: start: 20240604
  6. ASPIRIN [Concomitant]
     Active Substance: ASPIRIN
     Dates: start: 20240604
  7. Atovaquone 750 mg / 5ml [Concomitant]
     Dates: start: 20240604
  8. Calcium 600 + vitamin D (400 Units) [Concomitant]
     Dates: start: 20240604
  9. enoxaparin 40 mg / 0.4 ml [Concomitant]
     Dates: start: 20240604
  10. OMEPRAZOLE [Concomitant]
     Active Substance: OMEPRAZOLE
     Dates: start: 20240604
  11. FLUCONAZOLE [Concomitant]
     Active Substance: FLUCONAZOLE
     Dates: start: 20240604
  12. insulin aspat [Concomitant]
     Dates: start: 20240604
  13. Ipratropium bromide / albuterol [Concomitant]
     Dates: start: 20240604
  14. melatonin 3 mg [Concomitant]
     Dates: start: 20240604
  15. metoprol0l succinate 25 mg [Concomitant]
     Dates: start: 20240604
  16. MG PLUS PROTEIN [Concomitant]
     Dates: start: 20240604
  17. PREDNISONE [Concomitant]
     Active Substance: PREDNISONE
     Dates: start: 20240604
  18. Rosuvastain 10 mg [Concomitant]
     Dates: start: 20240604
  19. Senna 8.6 mg [Concomitant]
     Dates: start: 20240604
  20. Sodium Chloride Nebulizing solution [Concomitant]
     Dates: start: 20240604
  21. Tab-a-vite with iron [Concomitant]
     Dates: start: 20240604
  22. Tacrolimus 0.5 and 5 mg [Concomitant]
     Dates: start: 20240604
  23. TRAZODONE [Concomitant]
     Active Substance: TRAZODONE HYDROCHLORIDE
     Dates: start: 20240604
  24. VALACYCLOVIR HYDROCHLORIDE [Concomitant]
     Active Substance: VALACYCLOVIR HYDROCHLORIDE
     Dates: start: 20240604
  25. VITAMIN D2 [Concomitant]
     Active Substance: ERGOCALCIFEROL
     Dates: start: 20240604

REACTIONS (2)
  - Hospitalisation [None]
  - Drug level increased [None]

NARRATIVE: CASE EVENT DATE: 20240617
